FAERS Safety Report 23748750 (Version 2)
Quarter: 2024Q2

REPORT INFORMATION
  Report Type: Report from Study
  Country: CA (occurrence: CA)
  Receive Date: 20240416
  Receipt Date: 20240417
  Transmission Date: 20240715
  Serious: Yes (Other)
  Sender: FDA-Public Use
  Company Number: CA-HLS-202400991

PATIENT
  Sex: Male

DRUGS (1)
  1. CLOZARIL [Suspect]
     Active Substance: CLOZAPINE
     Indication: Product used for unknown indication
     Dosage: ?375MG?QHS?SINCE?DEC?2021
     Route: 048
     Dates: start: 20210215

REACTIONS (5)
  - Diabetes mellitus [Unknown]
  - Alanine aminotransferase increased [Unknown]
  - Hypertriglyceridaemia [Unknown]
  - High density lipoprotein decreased [Unknown]
  - Metabolic disorder [Unknown]
